FAERS Safety Report 5362551-5 (Version None)
Quarter: 2007Q2

REPORT INFORMATION
  Report Type: 
  Country: None (occurrence: None)
  Receive Date: 20070619
  Receipt Date: 20070613
  Transmission Date: 20071010
  Serious: Yes (Other)
  Sender: FDA-Public Use
  Company Number: US-PFIZER INC-2007048481

PATIENT
  Sex: Female
  Weight: 68.181 kg

DRUGS (3)
  1. ZYRTEC [Suspect]
     Indication: HYPERSENSITIVITY
  2. SYNTHROID [Concomitant]
  3. ADVAIR DISKUS 100/50 [Concomitant]

REACTIONS (6)
  - CATARACT OPERATION [None]
  - DRUG INEFFECTIVE [None]
  - FEELING ABNORMAL [None]
  - GENERAL PHYSICAL CONDITION ABNORMAL [None]
  - RHINORRHOEA [None]
  - SNEEZING [None]
